FAERS Safety Report 9470476 (Version 1)
Quarter: 2013Q3

REPORT INFORMATION
  Report Type: Spontaneous
  Country: ES (occurrence: None)
  Receive Date: 20130815
  Receipt Date: 20130815
  Transmission Date: 20140515
  Serious: Yes (Other)
  Sender: FDA-Public Use
  Company Number: KAD201308-000976

PATIENT
  Sex: 0

DRUGS (2)
  1. RIBAVIRIN (RIBAVIRIN) [Suspect]
     Indication: CHRONIC HEPATITIS C
  2. PEGYLATED INTERFERON (PEGYLATED INTERFERON) [Suspect]
     Indication: CHRONIC HEPATITIS C

REACTIONS (3)
  - Portal vein thrombosis [None]
  - Liver disorder [None]
  - Condition aggravated [None]
